FAERS Safety Report 8921442 (Version 3)
Quarter: 2013Q2

REPORT INFORMATION
  Report Type: Spontaneous
  Country: US (occurrence: US)
  Receive Date: 20121121
  Receipt Date: 20130516
  Transmission Date: 20140414
  Serious: Yes (Hospitalization, Disabling, Other)
  Sender: FDA-Public Use
  Company Number: US-009507513-1211USA007589

PATIENT
  Sex: Female
  Weight: 73.16 kg

DRUGS (2)
  1. NUVARING [Suspect]
     Indication: DYSMENORRHOEA
     Dosage: IN 3 WEEKS, OUT 1 WEEK
     Route: 067
     Dates: start: 20090420, end: 20101023
  2. NUVARING [Suspect]
     Indication: PREMENSTRUAL SYNDROME

REACTIONS (18)
  - Intracranial venous sinus thrombosis [Not Recovered/Not Resolved]
  - Headache [Unknown]
  - Depression [Unknown]
  - Anxiety [Unknown]
  - Off label use [Recovered/Resolved]
  - Vision blurred [Unknown]
  - Adverse drug reaction [Unknown]
  - Insomnia [Unknown]
  - Drug prescribing error [Unknown]
  - Irritable bowel syndrome [Unknown]
  - Ovarian cyst [Unknown]
  - Adverse drug reaction [Unknown]
  - Nausea [Unknown]
  - Headache [Unknown]
  - Constipation [Recovering/Resolving]
  - Dysmenorrhoea [Unknown]
  - Dural fistula [Unknown]
  - Therapeutic response unexpected [Unknown]
